FAERS Safety Report 21849926 (Version 2)
Quarter: 2023Q1

REPORT INFORMATION
  Report Type: Spontaneous
  Country: US (occurrence: US)
  Receive Date: 20230111
  Receipt Date: 20230227
  Transmission Date: 20230417
  Serious: Yes (Other)
  Sender: FDA-Public Use
  Company Number: US-ORGANON-O2301USA000279

PATIENT
  Age: 20 Year
  Sex: Female

DRUGS (3)
  1. ETHINYL ESTRADIOL\ETONOGESTREL [Suspect]
     Active Substance: ETHINYL ESTRADIOL\ETONOGESTREL
     Dosage: 1 RING
     Route: 067
     Dates: start: 20221230, end: 20230103
  2. ETHINYL ESTRADIOL\ETONOGESTREL [Suspect]
     Active Substance: ETHINYL ESTRADIOL\ETONOGESTREL
     Dosage: 1 RING, (REPORTED AS RECEIVED A 3 PACK)
     Route: 067
     Dates: start: 20230216, end: 202302
  3. ETHINYL ESTRADIOL\ETONOGESTREL [Suspect]
     Active Substance: ETHINYL ESTRADIOL\ETONOGESTREL
     Dosage: 1 RING, (REPORTED AS RECEIVED A 3 PACK)
     Route: 067
     Dates: start: 202302

REACTIONS (6)
  - Device expulsion [Unknown]
  - Device expulsion [Unknown]
  - Device expulsion [Unknown]
  - Device breakage [Unknown]
  - Medical device site discomfort [Unknown]
  - Product dose omission issue [Unknown]

NARRATIVE: CASE EVENT DATE: 20221230
